FAERS Safety Report 19676022 (Version 3)
Quarter: 2021Q4

REPORT INFORMATION
  Report Type: Spontaneous
  Country: DE (occurrence: DE)
  Receive Date: 20210809
  Receipt Date: 20211129
  Transmission Date: 20220303
  Serious: Yes (Other)
  Sender: FDA-Public Use
  Company Number: DE-002147023-NVSC2021DE034432

PATIENT
  Sex: Male

DRUGS (11)
  1. VALPROIC ACID [Suspect]
     Active Substance: VALPROIC ACID
     Indication: Product used for unknown indication
     Dosage: UNK
     Route: 065
  2. OXCARBAZEPINE [Suspect]
     Active Substance: OXCARBAZEPINE
     Indication: Product used for unknown indication
     Dosage: UNK
     Route: 065
  3. OXCARBAZEPINE [Suspect]
     Active Substance: OXCARBAZEPINE
     Dosage: UNK, (2 X 0.5 ML/WEEK)
     Route: 065
  4. LAMOTRIGINE [Suspect]
     Active Substance: LAMOTRIGINE
     Indication: Product used for unknown indication
     Dosage: 40 MILLIGRAM
     Route: 065
  5. LAMOTRIGINE [Suspect]
     Active Substance: LAMOTRIGINE
     Dosage: 5 MILLIGRAM, QW
     Route: 065
  6. LAMOTRIGINE [Suspect]
     Active Substance: LAMOTRIGINE
     Dosage: UNK
     Route: 065
  7. EPIDIOLEX [Suspect]
     Active Substance: CANNABIDIOL
     Indication: Tuberous sclerosis complex
     Dosage: UNK, (2 X 0.5 MG/DAY = 6.7 MG/KG BODY WEIGHT PER DAY)
     Route: 065
  8. EPIDIOLEX [Suspect]
     Active Substance: CANNABIDIOL
     Indication: Epilepsy
     Dosage: UNK
     Route: 065
  9. EPIDIOLEX [Suspect]
     Active Substance: CANNABIDIOL
     Dosage: 100 MILLIGRAM
     Route: 048
  10. EVEROLIMUS [Suspect]
     Active Substance: EVEROLIMUS
     Indication: Epilepsy
     Dosage: UNK
     Route: 065
  11. EVEROLIMUS [Suspect]
     Active Substance: EVEROLIMUS
     Indication: Tuberous sclerosis complex

REACTIONS (4)
  - Drug-induced liver injury [Unknown]
  - Seizure [Unknown]
  - Drug level increased [Unknown]
  - Aphthous ulcer [Unknown]
